FAERS Safety Report 20860128 (Version 1)
Quarter: 2022Q2

REPORT INFORMATION
  Report Type: Spontaneous
  Country: US (occurrence: US)
  Receive Date: 20220523
  Receipt Date: 20220523
  Transmission Date: 20220721
  Serious: No
  Sender: FDA-Public Use
  Company Number: US-BRISTOL-MYERS SQUIBB COMPANY-2022-030285

PATIENT
  Age: 69 Year
  Sex: Female
  Weight: 80.29 kg

DRUGS (4)
  1. ELIQUIS [Suspect]
     Active Substance: APIXABAN
     Indication: Cerebrovascular accident prophylaxis
  2. Pfizer (COVID-19 Vaccine) [Concomitant]
     Indication: Product used for unknown indication
  3. Pfizer (COVID-19 Vaccine) [Concomitant]
     Dosage: SECOND BOOSTER
     Dates: start: 20220421
  4. TYLENOL [Concomitant]
     Active Substance: ACETAMINOPHEN
     Indication: Product used for unknown indication

REACTIONS (1)
  - Intentional product use issue [Unknown]
